FAERS Safety Report 8413552-1 (Version None)
Quarter: 2012Q2

REPORT INFORMATION
  Report Type: 
  Country: None (occurrence: None)
  Receive Date: 20120605
  Receipt Date: 20120524
  Transmission Date: 20120825
  Serious: Yes (Other)
  Sender: FDA-Public Use
  Company Number: FR-GLAXOSMITHKLINE-B0791598A

PATIENT
  Age: 85 Year
  Sex: Female
  Weight: 62 kg

DRUGS (5)
  1. VASTAREL [Concomitant]
     Dosage: 35MG TWICE PER DAY
     Route: 048
  2. LEXOMIL [Concomitant]
     Dosage: 6MG PER DAY
     Route: 048
  3. ARIXTRA [Suspect]
     Indication: DEEP VEIN THROMBOSIS
     Dosage: 7.5MG PER DAY
     Route: 058
     Dates: start: 20120105, end: 20120113
  4. TRIMEPRAZINE TARTRATE [Concomitant]
     Dosage: 20DROP PER DAY
     Route: 048
  5. ZOLPIDEM [Concomitant]
     Dosage: 10MG TWICE PER DAY
     Route: 048

REACTIONS (2)
  - PULMONARY EMBOLISM [None]
  - CHEST PAIN [None]
